FAERS Safety Report 7555277-0 (Version None)
Quarter: 2011Q2

REPORT INFORMATION
  Report Type: 
  Country: None (occurrence: None)
  Receive Date: 20110617
  Receipt Date: 20110614
  Transmission Date: 20111010
  Serious: Yes (Death)
  Sender: FDA-Public Use
  Company Number: PHHY2010BR92275

PATIENT
  Sex: Male

DRUGS (2)
  1. DIOVAN HCT [Suspect]
     Dosage: VALSARTAN 160MG AND HYDROCHLOROTIAZIDE 12.5MG
     Route: 048
  2. GALVUS MET [Suspect]
     Dosage: VILDAGLIPTIN 50MG AND METFORMIN 1000MG
     Route: 048

REACTIONS (1)
  - DEATH [None]
